FAERS Safety Report 9430402 (Version 1)
Quarter: 2013Q3

REPORT INFORMATION
  Report Type: Spontaneous
  Country: US (occurrence: US)
  Receive Date: 20130730
  Receipt Date: 20130730
  Transmission Date: 20140515
  Serious: No
  Sender: FDA-Public Use
  Company Number: US-ABBOTT-13P-163-1083154-00

PATIENT
  Age: 66 Year
  Sex: Female

DRUGS (9)
  1. NIASPAN (COATED) [Suspect]
     Indication: BLOOD TRIGLYCERIDES INCREASED
     Dates: start: 20130419
  2. LEVOTHYROXINE [Concomitant]
     Indication: HYPOTHYROIDISM
  3. FOCALIN [Concomitant]
     Indication: POLYMYOSITIS
  4. HYDROCHLOROTHIAZIDE [Concomitant]
     Indication: FLUID RETENTION
  5. BACLOFEN [Concomitant]
     Indication: MUSCLE SPASMS
  6. LEXAPRO [Concomitant]
     Indication: DEPRESSION
  7. TRAZODONE [Concomitant]
     Indication: INSOMNIA
  8. OMEPRAZOLE [Concomitant]
     Indication: GASTROOESOPHAGEAL REFLUX DISEASE
  9. ASPIRIN [Concomitant]
     Indication: CARDIOVASCULAR EVENT PROPHYLAXIS

REACTIONS (3)
  - Fatigue [Unknown]
  - Myalgia [Unknown]
  - Abdominal pain upper [Unknown]
